FAERS Safety Report 10179255 (Version 1)
Quarter: 2014Q2

REPORT INFORMATION
  Report Type: Spontaneous
  Country: US (occurrence: US)
  Receive Date: 20140519
  Receipt Date: 20140519
  Transmission Date: 20141212
  Serious: No
  Sender: FDA-Public Use
  Company Number: US-ENDO PHARMACEUTICALS INC.-AMLO20130009

PATIENT
  Age: 76 Year
  Sex: Female
  Weight: 59.02 kg

DRUGS (1)
  1. AMLODIPINE BESYLATE TABLETS [Suspect]
     Indication: PRODUCT USED FOR UNKNOWN INDICATION
     Dosage: UNKNOWN
     Route: 048
     Dates: end: 201302

REACTIONS (1)
  - Drug hypersensitivity [Not Recovered/Not Resolved]
